FAERS Safety Report 9892046 (Version 1)
Quarter: 2014Q1

REPORT INFORMATION
  Report Type: Report from Study
  Country: AR (occurrence: AR)
  Receive Date: 20140212
  Receipt Date: 20140212
  Transmission Date: 20141002
  Serious: Yes (Other)
  Sender: FDA-Public Use
  Company Number: PHHY2014AR016730

PATIENT
  Sex: Male

DRUGS (1)
  1. EXFORGE [Suspect]
     Indication: HYPERTENSION
     Dosage: 1 DF, (160/5 MG) DAILY
     Route: 048

REACTIONS (4)
  - Intervertebral disc protrusion [Unknown]
  - Muscular weakness [Unknown]
  - Hypoaesthesia [Unknown]
  - Spinal disorder [Not Recovered/Not Resolved]
